FAERS Safety Report 9676437 (Version 3)
Quarter: 2013Q4

REPORT INFORMATION
  Report Type: Spontaneous
  Country: US (occurrence: US)
  Receive Date: 20131107
  Receipt Date: 20131216
  Transmission Date: 20140711
  Serious: Yes (Other)
  Sender: FDA-Public Use
  Company Number: CHPA2013US016130

PATIENT
  Age: 79 Year
  Sex: Female

DRUGS (2)
  1. KERI ORIGINAL [Suspect]
     Indication: DRY SKIN
     Dosage: 1 DF, ONCE/SINGLE
     Route: 061
     Dates: start: 201310, end: 201310
  2. KERI SHEA BUTTER [Suspect]
     Indication: DRY SKIN
     Dosage: 1 DF, ONCE/SINGLE
     Route: 061
     Dates: start: 201310, end: 201310

REACTIONS (3)
  - Bronchitis [Unknown]
  - Malaise [Unknown]
  - Drug ineffective [Unknown]
